FAERS Safety Report 7211387-9 (Version None)
Quarter: 2010Q4

REPORT INFORMATION
  Report Type: 
  Country: None (occurrence: None)
  Receive Date: 20101223
  Receipt Date: 20101208
  Transmission Date: 20110411
  Serious: Yes (Hospitalization)
  Sender: FDA-Public Use
  Company Number: DSA_44510_2010

PATIENT
  Age: 76 Year
  Sex: Female

DRUGS (7)
  1. ENALAPRIL MALEATE [Suspect]
     Indication: MYOCARDIAL ISCHAEMIA
     Dosage: (2.5 MG QD ORAL)
     Route: 048
     Dates: end: 20101207
  2. ASPIRIN [Concomitant]
  3. CRESTOR [Concomitant]
  4. FRANDOL [Concomitant]
  5. MUCOSTA [Concomitant]
  6. PANALDINE [Concomitant]
  7. SIGMART [Concomitant]

REACTIONS (3)
  - EOSINOPHIL COUNT INCREASED [None]
  - LEUKOPENIA [None]
  - NEUTROPHIL COUNT DECREASED [None]
